FAERS Safety Report 21651703 (Version 1)
Quarter: 2022Q4

REPORT INFORMATION
  Report Type: Spontaneous
  Country: US (occurrence: None)
  Receive Date: 20221123
  Receipt Date: 20221123
  Transmission Date: 20230113
  Serious: No
  Sender: FDA-Public Use
  Company Number: None

PATIENT
  Sex: Male
  Weight: 98.43 kg

DRUGS (11)
  1. INLYTA [Suspect]
     Active Substance: AXITINIB
     Indication: Renal cancer
     Dosage: FREQUENCY : TWICE A DAY;?
     Route: 048
  2. ALLOPURINOL [Concomitant]
     Active Substance: ALLOPURINOL
  3. ATENOLOL [Concomitant]
     Active Substance: ATENOLOL
  4. FLONASE ALLERGY RELIEF [Concomitant]
     Active Substance: FLUTICASONE PROPIONATE
  5. FOLIC ACID [Concomitant]
     Active Substance: FOLIC ACID
  6. HYDROCHLOROTHIAZIDE [Concomitant]
     Active Substance: HYDROCHLOROTHIAZIDE
  7. KEYTRUDA [Concomitant]
     Active Substance: PEMBROLIZUMAB
  8. OMEPRAZOLE [Concomitant]
     Active Substance: OMEPRAZOLE
  9. POTASSIUM CLORIDE [Concomitant]
  10. PROAIR HFA [Concomitant]
     Active Substance: ALBUTEROL SULFATE
  11. VITAMIN B12 [Concomitant]
     Active Substance: CYANOCOBALAMIN

REACTIONS (1)
  - Drug ineffective [None]
